FAERS Safety Report 5797917-2 (Version None)
Quarter: 2008Q2

REPORT INFORMATION
  Report Type: 
  Country: None (occurrence: None)
  Receive Date: 20080630
  Receipt Date: 20080624
  Transmission Date: 20081010
  Serious: Yes (Other)
  Sender: FDA-Public Use
  Company Number: 2008JP002995

PATIENT
  Sex: Male

DRUGS (1)
  1. PROGRAF [Suspect]
     Dosage: ORAL
     Route: 048

REACTIONS (1)
  - NEPHROTIC SYNDROME [None]
